FAERS Safety Report 8429947-6 (Version None)
Quarter: 2012Q2

REPORT INFORMATION
  Report Type: 
  Country: None (occurrence: None)
  Receive Date: 20120612
  Receipt Date: 20120607
  Transmission Date: 20120825
  Serious: Yes (Hospitalization)
  Sender: FDA-Public Use
  Company Number: US-ASTRAZENECA-2012SE38094

PATIENT
  Age: 89 Year
  Sex: Female
  Weight: 64.4 kg

DRUGS (2)
  1. NEXIUM [Suspect]
     Indication: GASTROOESOPHAGEAL REFLUX DISEASE
     Route: 048
  2. BLOOD PRESSURE PILL [Concomitant]

REACTIONS (2)
  - HEARING IMPAIRED [None]
  - PNEUMONIA [None]
